FAERS Safety Report 10049619 (Version 1)
Quarter: 2014Q2

REPORT INFORMATION
  Report Type: Report from Study
  Country: MX (occurrence: MX)
  Receive Date: 20140401
  Receipt Date: 20140401
  Transmission Date: 20141212
  Serious: Yes (Death, Other)
  Sender: FDA-Public Use
  Company Number: PHHY2014MX038633

PATIENT
  Age: 84 Year
  Sex: Female

DRUGS (4)
  1. EXELON PATCH [Suspect]
     Indication: DEMENTIA ALZHEIMER^S TYPE
     Dosage: 9.5 MG (PATCH 10 CM2), DAILY
     Route: 062
     Dates: start: 20140218, end: 20140223
  2. METFORMIN [Concomitant]
     Indication: DIABETES MELLITUS
     Dosage: UNK UKN, UNK
  3. ROCEPHIN [Concomitant]
     Dosage: UNK UKN, UNK
  4. INSULIN [Concomitant]
     Indication: DIABETES MELLITUS
     Dosage: 4 DF (4 UNITS), UNK

REACTIONS (7)
  - Diabetes mellitus [Fatal]
  - Blood glucose fluctuation [Fatal]
  - Hypophagia [Unknown]
  - Urinary tract infection [Unknown]
  - White blood cell count increased [Unknown]
  - Nausea [Unknown]
  - Vomiting [Unknown]
